FAERS Safety Report 4830029-0 (Version None)
Quarter: 2005Q4

REPORT INFORMATION
  Report Type: 
  Country: None (occurrence: None)
  Receive Date: 20051115
  Receipt Date: 20051115
  Transmission Date: 20060501
  Serious: Yes (Hospitalization)
  Sender: FDA-Public Use
  Company Number: None

PATIENT
  Age: 56 Year
  Sex: Male
  Weight: 93.441 kg

DRUGS (3)
  1. FLUPHENAZINE [Suspect]
     Indication: SCHIZOPHRENIA
     Dosage: 5MG AM, 10MG PM PO
     Route: 048
     Dates: start: 19960731, end: 20050708
  2. SERTRALINE HCL [Concomitant]
  3. SIMVASTATIN [Concomitant]

REACTIONS (6)
  - DIZZINESS [None]
  - EYE INJURY [None]
  - FALL [None]
  - FOOT FRACTURE [None]
  - ORTHOSTATIC HYPOTENSION [None]
  - SYNCOPE [None]
